FAERS Safety Report 5027398-8 (Version None)
Quarter: 2006Q2

REPORT INFORMATION
  Report Type: 
  Country: None (occurrence: None)
  Receive Date: 20060501
  Receipt Date: 20060215
  Transmission Date: 20061013
  Serious: No
  Sender: FDA-Public Use
  Company Number: 200610886BWH

PATIENT
  Age: 65 Year
  Sex: Female

DRUGS (4)
  1. NEXAVAR [Suspect]
     Indication: METASTASES TO BONE
     Dosage: 400 MG, BID, ORAL
     Route: 048
     Dates: start: 20060130
  2. NEXAVAR [Suspect]
     Indication: METASTASES TO CENTRAL NERVOUS SYSTEM
     Dosage: 400 MG, BID, ORAL
     Route: 048
     Dates: start: 20060130
  3. NEXAVAR [Suspect]
     Indication: RENAL CELL CARCINOMA STAGE UNSPECIFIED
     Dosage: 400 MG, BID, ORAL
     Route: 048
     Dates: start: 20060130
  4. OXYCONTIN [Concomitant]

REACTIONS (5)
  - ERYTHEMA [None]
  - RASH [None]
  - RASH ERYTHEMATOUS [None]
  - RASH GENERALISED [None]
  - RASH PRURITIC [None]
